FAERS Safety Report 13795039 (Version 1)
Quarter: 2017Q3

REPORT INFORMATION
  Report Type: Spontaneous
  Country: DE (occurrence: DE)
  Receive Date: 20170726
  Receipt Date: 20170726
  Transmission Date: 20171127
  Serious: Yes (Hospitalization, Other)
  Sender: FDA-Public Use
  Company Number: DE-AMGEN-DEUSP2017109209

PATIENT
  Age: 24 Year
  Sex: Male
  Weight: 39.4 kg

DRUGS (20)
  1. ONDATRON [Concomitant]
     Dosage: 4 MG, AS NECESSARY
  2. ZEMPLAR [Concomitant]
     Active Substance: PARICALCITOL
     Dosage: 0.005 MG, UNK
     Route: 042
  3. PARSABIV [Suspect]
     Active Substance: ETELCALCETIDE HYDROCHLORIDE
     Indication: HYPERPARATHYROIDISM SECONDARY
     Dosage: 5 MG, Q2WK
     Route: 042
     Dates: start: 20170610, end: 20170717
  4. AMITRIPTYLIN [Concomitant]
     Active Substance: AMITRIPTYLINE
  5. NOVAMINSULFON 1 A PHARMA [Concomitant]
     Dosage: UNK UNK, AS NECESSARY
  6. BRANOLIND [Concomitant]
     Indication: WOUND
  7. FERRLECIT [Concomitant]
     Active Substance: SODIUM FERRIC GLUCONATE COMPLEX
     Dosage: 40 MG, UNK
     Route: 042
  8. ALLEVYN AG [Concomitant]
     Dosage: UNK UNK, QWK
  9. NEORECORMON [Concomitant]
     Active Substance: ERYTHROPOIETIN
     Dosage: 2000 IE, UNK
     Route: 042
  10. NEPHROTRANS [Concomitant]
     Active Substance: SODIUM BICARBONATE
     Dosage: 840 MG, UNK
  11. SOLUVIT N [Concomitant]
     Active Substance: VITAMINS
     Dosage: 10 ML, UNK
     Route: 042
  12. VELPHORO [Concomitant]
     Active Substance: FERRIC OXYHYDROXIDE
     Dosage: 500 MG, UNK
  13. FOSRENOL [Concomitant]
     Active Substance: LANTHANUM CARBONATE
     Dosage: 750 MG, TID
  14. MCP [Concomitant]
     Active Substance: METOCLOPRAMIDE HYDROCHLORIDE
     Dosage: 30 MG, AS NECESSARY
  15. CONCOR [Concomitant]
     Active Substance: BISOPROLOL FUMARATE
     Dosage: UNK UNK, BID
  16. TEMGESIC [Concomitant]
     Active Substance: BUPRENORPHINE HYDROCHLORIDE
     Dosage: 0.2 MG, AS NECESSARY
  17. ANTI KALIUM [Concomitant]
     Dosage: UNK UNK, AS NECESSARY
  18. AMLODIPIN 1A FARMA [Concomitant]
     Active Substance: AMLODIPINE BESYLATE
     Dosage: 5 MG, QD
  19. EMLA [Concomitant]
     Active Substance: LIDOCAINE\PRILOCAINE
  20. DEKRISTOL [Concomitant]
     Active Substance: CHOLECALCIFEROL
     Dosage: 1 KPS, UNK
     Route: 048

REACTIONS (1)
  - Hyponatraemia [Not Recovered/Not Resolved]

NARRATIVE: CASE EVENT DATE: 20170621
